FAERS Safety Report 25980848 (Version 1)
Quarter: 2025Q4

REPORT INFORMATION
  Report Type: Spontaneous
  Country: EU (occurrence: EU)
  Receive Date: 20251030
  Receipt Date: 20251030
  Transmission Date: 20260118
  Serious: Yes (Hospitalization, Other)
  Sender: AMGEN
  Company Number: EU-ABBVIE-6501773

PATIENT
  Age: 58 Year
  Sex: Female

DRUGS (5)
  1. ADALIMUMAB [Suspect]
     Active Substance: ADALIMUMAB
     Indication: Product used for unknown indication
     Dosage: 80 MILLIGRAM, Q2WK
     Route: 058
     Dates: start: 200906, end: 202501
  2. USTEKINUMAB [Suspect]
     Active Substance: USTEKINUMAB
     Indication: Product used for unknown indication
     Dosage: UNK
     Route: 065
     Dates: start: 202410
  3. INFLIXIMAB [Concomitant]
     Active Substance: INFLIXIMAB
     Dosage: UNK
     Dates: start: 201402
  4. INFLIXIMAB [Concomitant]
     Active Substance: INFLIXIMAB
     Dosage: UNK, DOSE WAS DOUBLED, LEVEL ROSE TO 10-12
  5. INFLIXIMAB [Concomitant]
     Active Substance: INFLIXIMAB
     Dosage: UNK, LEVEL OF 1.0 MICROGRAM/MILLILITER, ANTI-INFLIXIMAB ANTIBODY  TITERS OF 172 AU/ML
     Dates: start: 201512

REACTIONS (7)
  - Unevaluable event [Unknown]
  - Vascular graft [Unknown]
  - Colitis [Unknown]
  - C-reactive protein abnormal [Unknown]
  - Faecal calprotectin abnormal [Unknown]
  - Haemoglobin abnormal [Unknown]
  - Diarrhoea [Not Recovered/Not Resolved]

NARRATIVE: CASE EVENT DATE: 20120101
